FAERS Safety Report 10233000 (Version 1)
Quarter: 2014Q2

REPORT INFORMATION
  Report Type: Spontaneous
  Country: US (occurrence: US)
  Receive Date: 20140612
  Receipt Date: 20140612
  Transmission Date: 20141212
  Serious: No
  Sender: FDA-Public Use
  Company Number: US-PFIZER INC-2014158558

PATIENT
  Age: 75 Year
  Sex: Female

DRUGS (5)
  1. LOPID [Suspect]
     Dosage: UNK
  2. CODEINE [Suspect]
     Dosage: UNK
  3. TALWIN [Suspect]
     Dosage: UNK
  4. NOVOCAINE [Suspect]
     Dosage: UNK
  5. ACTONEL [Suspect]
     Dosage: UNK

REACTIONS (1)
  - Drug hypersensitivity [Unknown]
